FAERS Safety Report 8488301-1 (Version None)
Quarter: 2012Q3

REPORT INFORMATION
  Report Type: 
  Country: None (occurrence: None)
  Receive Date: 20120705
  Receipt Date: 20120626
  Transmission Date: 20120928
  Serious: Yes (Death, Other)
  Sender: FDA-Public Use
  Company Number: US-INCYTE CORPORATION-2012IN000757

PATIENT
  Sex: Female
  Weight: 58 kg

DRUGS (2)
  1. JAKAFI [Suspect]
     Indication: POLYCYTHAEMIA
     Dosage: 20 MG BID
     Route: 048
     Dates: start: 20120329, end: 20120426
  2. JAKAFI [Suspect]
     Indication: MYELOFIBROSIS

REACTIONS (4)
  - DEATH [None]
  - DYSPNOEA [None]
  - CHEST PAIN [None]
  - HAEMOGLOBIN DECREASED [None]
